FAERS Safety Report 18924419 (Version 1)
Quarter: 2021Q1

REPORT INFORMATION
  Report Type: Spontaneous
  Country: US (occurrence: US)
  Receive Date: 20210222
  Receipt Date: 20210222
  Transmission Date: 20210420
  Serious: No
  Sender: FDA-Public Use
  Company Number: US-PERRIGO-20US006956

PATIENT
  Age: 14 Year
  Sex: Female

DRUGS (1)
  1. SELENIUM SULFIDE. [Suspect]
     Active Substance: SELENIUM SULFIDE
     Indication: ACNE
     Dosage: UNKNOWN, SINGLE
     Route: 061
     Dates: start: 20200509, end: 20200509

REACTIONS (2)
  - Off label use [Recovered/Resolved]
  - Application site burn [Not Recovered/Not Resolved]

NARRATIVE: CASE EVENT DATE: 20200509
